FAERS Safety Report 6841681-2 (Version None)
Quarter: 2010Q3

REPORT INFORMATION
  Report Type: 
  Country: None (occurrence: None)
  Receive Date: 20100714
  Receipt Date: 20070711
  Transmission Date: 20110219
  Serious: No
  Sender: FDA-Public Use
  Company Number: US-PFIZER INC-2007059072

PATIENT
  Sex: Female
  Weight: 81.8 kg

DRUGS (8)
  1. CHANTIX [Suspect]
     Indication: SMOKING CESSATION THERAPY
     Dates: start: 20070705
  2. POTASSIUM CHLORIDE [Concomitant]
  3. SERTRALINE HCL [Concomitant]
  4. CADUET [Concomitant]
     Indication: HYPERTENSION
  5. CADUET [Concomitant]
     Indication: BLOOD CHOLESTEROL INCREASED
  6. ATENOLOL [Concomitant]
  7. ACETYLSALICYLIC ACID [Concomitant]
  8. HYDROCHLOROTHIAZIDE [Concomitant]

REACTIONS (3)
  - ABNORMAL DREAMS [None]
  - NAUSEA [None]
  - VOMITING [None]
